FAERS Safety Report 10037062 (Version 1)
Quarter: 2014Q1

REPORT INFORMATION
  Report Type: Spontaneous
  Country: US (occurrence: US)
  Receive Date: 20140326
  Receipt Date: 20140326
  Transmission Date: 20141002
  Serious: No
  Sender: FDA-Public Use
  Company Number: US-009507513-1403USA009403

PATIENT
  Age: 50 Year
  Sex: Female

DRUGS (4)
  1. PEGINTRON [Suspect]
     Indication: HEPATITIS C
     Dosage: 0.5 ML, QW, REDIPEN
     Route: 058
     Dates: start: 20140305
  2. REBETOL [Suspect]
     Indication: HEPATITIS C
     Dosage: 400 MG, BID
     Route: 048
     Dates: start: 20140305
  3. SOVALDI [Concomitant]
     Dosage: 400 MG, QD
     Route: 048
  4. ADVIL [Concomitant]
     Dosage: 200 MG, PRN
     Route: 048

REACTIONS (2)
  - Influenza like illness [Unknown]
  - Headache [Recovering/Resolving]
